FAERS Safety Report 4939415-1 (Version None)
Quarter: 2006Q1

REPORT INFORMATION
  Report Type: 
  Country: None (occurrence: None)
  Receive Date: 20060307
  Receipt Date: 20060220
  Transmission Date: 20060701
  Serious: Yes (Other)
  Sender: FDA-Public Use
  Company Number: B0413757A

PATIENT
  Age: 34 Year
  Sex: Male

DRUGS (3)
  1. LAMICTAL [Suspect]
     Indication: EPILEPSY
  2. PHENYTOIN [Suspect]
     Indication: EPILEPSY
  3. CARBAMAZEPINE [Suspect]
     Indication: EPILEPSY

REACTIONS (7)
  - ALANINE AMINOTRANSFERASE INCREASED [None]
  - ARACHNOID CYST [None]
  - BRAIN NEOPLASM [None]
  - ELECTROENCEPHALOGRAM ABNORMAL [None]
  - GAMMA-GLUTAMYLTRANSFERASE INCREASED [None]
  - NERVOUS SYSTEM DISORDER [None]
  - RED BLOOD CELL ABNORMALITY [None]
